FAERS Safety Report 4476988-X (Version None)
Quarter: 2004Q4

REPORT INFORMATION
  Report Type: 
  Country: None (occurrence: None)
  Receive Date: 20041018
  Receipt Date: 20041007
  Transmission Date: 20050328
  Serious: Yes (Hospitalization)
  Sender: FDA-Public Use
  Company Number: CL-ABBOTT-04P-034-0276810-00

PATIENT
  Age: 32 Year
  Sex: Male
  Weight: 65 kg

DRUGS (4)
  1. KALETRA [Suspect]
     Indication: HIV TEST POSITIVE
     Dosage: 800/100 MG
     Route: 048
     Dates: start: 20040924, end: 20040925
  2. ABACAVIR [Interacting]
     Indication: HIV TEST POSITIVE
     Route: 048
     Dates: start: 20040924, end: 20040925
  3. STAVUDINE [Suspect]
     Indication: HIV TEST POSITIVE
     Dates: start: 20040924, end: 20040925
  4. PARACETAMOL [Concomitant]
     Indication: DRUG USE FOR UNKNOWN INDICATION
     Route: 048

REACTIONS (7)
  - CONFUSIONAL STATE [None]
  - EPIDERMAL NECROSIS [None]
  - PRURITUS [None]
  - PYREXIA [None]
  - STEVENS-JOHNSON SYNDROME [None]
  - TACHYCARDIA [None]
  - TACHYPNOEA [None]
